FAERS Safety Report 7073490-6 (Version None)
Quarter: 2010Q4

REPORT INFORMATION
  Report Type: 
  Country: None (occurrence: None)
  Receive Date: 20101029
  Receipt Date: 20100820
  Transmission Date: 20110411
  Serious: No
  Sender: FDA-Public Use
  Company Number: A0867396A

PATIENT
  Sex: Female

DRUGS (1)
  1. ADVAIR DISKUS 100/50 [Suspect]
     Indication: CHRONIC OBSTRUCTIVE PULMONARY DISEASE
     Route: 055

REACTIONS (8)
  - CANDIDIASIS [None]
  - DYSPHAGIA [None]
  - EATING DISORDER [None]
  - FOREIGN BODY [None]
  - MOUTH INJURY [None]
  - PAIN [None]
  - PHARYNGEAL DISORDER [None]
  - PRODUCT QUALITY ISSUE [None]
